FAERS Safety Report 12934741 (Version 5)
Quarter: 2018Q2

REPORT INFORMATION
  Report Type: Spontaneous
  Country: DE (occurrence: DE)
  Receive Date: 20161111
  Receipt Date: 20180412
  Transmission Date: 20180711
  Serious: Yes (Hospitalization, Other)
  Sender: FDA-Public Use
  Company Number: DE-BAUSCH-BL-2016-027126

PATIENT
  Age: 81 Year
  Sex: Female

DRUGS (10)
  1. VENLAFAXINE [Interacting]
     Active Substance: VENLAFAXINE HYDROCHLORIDE
     Indication: MAJOR DEPRESSION
     Dosage: AT DAY 12 OF THARPY
     Route: 065
  2. VENLAFAXINE [Interacting]
     Active Substance: VENLAFAXINE HYDROCHLORIDE
     Dosage: AT DAY 15 OF THARPY
     Route: 065
  3. METRONIDAZOLE. [Interacting]
     Active Substance: METRONIDAZOLE
     Indication: CLOSTRIDIUM DIFFICILE COLITIS
     Dosage: DAILY DOSAGE OF 1,200 MG (IN 400 MG TABLETS)
     Route: 065
  4. VENLAFAXINE [Interacting]
     Active Substance: VENLAFAXINE HYDROCHLORIDE
     Indication: PSYCHOTIC DISORDER
     Dosage: FROM DAY 5 TO DAY 10 OF THARAPY
     Route: 065
  5. RISPERIDONE. [Interacting]
     Active Substance: RISPERIDONE
     Indication: PSYCHOTIC DISORDER
     Dosage: AT DAY 12 TO 15 OF THERAPY
     Route: 065
  6. CEFUROXIME. [Concomitant]
     Active Substance: CEFUROXIME
     Indication: URINARY TRACT INFECTION
  7. RISPERIDONE. [Interacting]
     Active Substance: RISPERIDONE
     Indication: MAJOR DEPRESSION
     Dosage: DOSE REDUCED ON DAY 12
     Route: 065
  8. VENLAFAXINE [Suspect]
     Active Substance: VENLAFAXINE HYDROCHLORIDE
     Indication: MAJOR DEPRESSION
     Dosage: AT START OF THERAPY
     Route: 065
  9. METRONIDAZOLE. [Interacting]
     Active Substance: METRONIDAZOLE
     Indication: GASTROENTERITIS CLOSTRIDIAL
  10. RISPERIDONE. [Interacting]
     Active Substance: RISPERIDONE
     Indication: MAJOR DEPRESSION
     Dosage: FROM START TO DAY 10 OF THERAPY
     Route: 065

REACTIONS (12)
  - Dehydration [Unknown]
  - Hyponatraemia [Recovering/Resolving]
  - Clostridium colitis [Unknown]
  - Urinary tract infection pseudomonal [Unknown]
  - Fatigue [Unknown]
  - Headache [Unknown]
  - Drug level increased [Recovering/Resolving]
  - Nosocomial infection [Unknown]
  - Orthostatic hypotension [Recovering/Resolving]
  - Drug interaction [Recovering/Resolving]
  - Hypotension [Unknown]
  - Dizziness [Unknown]
